FAERS Safety Report 24616825 (Version 1)
Quarter: 2024Q4

REPORT INFORMATION
  Report Type: Spontaneous
  Country: US (occurrence: US)
  Receive Date: 20241114
  Receipt Date: 20241114
  Transmission Date: 20250115
  Serious: No
  Sender: OTSUKA
  Company Number: US-OTSUKA-2024_001243

PATIENT
  Age: 48 Year
  Sex: Male
  Weight: 113.4 kg

DRUGS (5)
  1. NUEDEXTA [Suspect]
     Active Substance: DEXTROMETHORPHAN HYDROBROMIDE\QUINIDINE SULFATE
     Indication: Affect lability
     Dosage: 1 DF(20/10 MG), BID
     Route: 048
     Dates: start: 20231116
  2. TIZANIDINE [Concomitant]
     Active Substance: TIZANIDINE
     Indication: Muscle spasticity
     Dosage: 4 MG
     Route: 065
  3. IBUPROFEN [Concomitant]
     Active Substance: IBUPROFEN
     Indication: Product used for unknown indication
     Dosage: 200 MG
     Route: 065
  4. DICLOFENAC [Concomitant]
     Active Substance: DICLOFENAC
     Indication: Product used for unknown indication
     Dosage: UNK
     Route: 065
  5. INSULIN NOS [Concomitant]
     Active Substance: INSULIN NOS
     Indication: Product used for unknown indication
     Dosage: UNK
     Route: 065

REACTIONS (5)
  - Salivary hypersecretion [Unknown]
  - Overweight [Unknown]
  - Asthenia [Unknown]
  - Product lot number issue [Unknown]
  - Product expiration date issue [Unknown]

NARRATIVE: CASE EVENT DATE: 20231116
